FAERS Safety Report 6467335-2 (Version None)
Quarter: 2009Q4

REPORT INFORMATION
  Report Type: 
  Country: None (occurrence: None)
  Receive Date: 20091202
  Receipt Date: 20091119
  Transmission Date: 20100525
  Serious: Yes (Hospitalization)
  Sender: FDA-Public Use
  Company Number: JP-BRISTOL-MYERS SQUIBB COMPANY-14855274

PATIENT
  Age: 50 Year
  Sex: Male

DRUGS (3)
  1. ABILIFY [Suspect]
     Indication: SCHIZOPHRENIA
     Route: 048
     Dates: start: 20090501
  2. ROHYPNOL [Concomitant]
     Dosage: TABLETS
     Dates: start: 20090501
  3. DORAL [Concomitant]
     Dosage: TABLETS
     Dates: start: 20090501

REACTIONS (2)
  - CONVULSION [None]
  - HYPERAMMONAEMIA [None]
